FAERS Safety Report 4440217-3 (Version None)
Quarter: 2004Q3

REPORT INFORMATION
  Report Type: 
  Country: None (occurrence: None)
  Receive Date: 20040903
  Receipt Date: 20040824
  Transmission Date: 20050211
  Serious: Yes (Death, Other)
  Sender: FDA-Public Use
  Company Number: US-BRISTOL-MYERS SQUIBB COMPANY-12683694

PATIENT
  Age: 52 Year
  Sex: Male

DRUGS (13)
  1. ABILIFY [Suspect]
     Indication: SCHIZOPHRENIA
     Dosage: 5 MG/DAY X 4 DAYS, THEN 10 MG/DAY X 4 DAYS, THEN 15 MG/DAY FOR 30 DAYS.
  2. CELEBREX [Concomitant]
  3. HALDOL [Concomitant]
     Dosage: EVENING
  4. KEPPRA [Concomitant]
  5. LIPITOR [Concomitant]
  6. ZOLOFT [Concomitant]
  7. AMBIEN [Concomitant]
  8. FOLIC ACID [Concomitant]
  9. GEODON [Concomitant]
  10. LOPERAMIDE HCL [Concomitant]
  11. TUSSIN CF COUGH [Concomitant]
  12. SODIUM CHLORIDE [Concomitant]
     Route: 045
  13. COLACE [Concomitant]

REACTIONS (3)
  - MENTAL STATUS CHANGES [None]
  - MUSCLE RIGIDITY [None]
  - SUDDEN DEATH [None]
